FAERS Safety Report 11864973 (Version 1)
Quarter: 2015Q4

REPORT INFORMATION
  Report Type: Spontaneous
  Country: US (occurrence: US)
  Receive Date: 20151223
  Receipt Date: 20151223
  Transmission Date: 20160305
  Serious: No
  Sender: FDA-Public Use
  Company Number: GXBR2015US002333

PATIENT
  Age: 54 Year
  Sex: Female
  Weight: 58.96 kg

DRUGS (2)
  1. AMPYRA [Concomitant]
     Active Substance: DALFAMPRIDINE
     Indication: MULTIPLE SCLEROSIS
     Dosage: UNK DF, UNK
  2. GLATOPA [Suspect]
     Active Substance: GLATIRAMER ACETATE
     Indication: MULTIPLE SCLEROSIS
     Dosage: 20 MG, QD
     Route: 058
     Dates: start: 201508

REACTIONS (3)
  - Injection site haematoma [Recovering/Resolving]
  - Injection site pain [Recovering/Resolving]
  - Injection site inflammation [Unknown]

NARRATIVE: CASE EVENT DATE: 20151016
